FAERS Safety Report 9156906 (Version 1)
Quarter: 2013Q1

REPORT INFORMATION
  Report Type: Spontaneous
  Country: US (occurrence: US)
  Receive Date: 20130312
  Receipt Date: 20130312
  Transmission Date: 20140127
  Serious: Yes (Hospitalization)
  Sender: FDA-Public Use
  Company Number: PHEH2013US005748

PATIENT
  Sex: Male

DRUGS (1)
  1. AFINITOR [Suspect]
     Indication: CARCINOID TUMOUR
     Dosage: UNK
     Route: 048
     Dates: start: 20130124

REACTIONS (1)
  - Pericarditis [Unknown]
